FAERS Safety Report 18520645 (Version 5)
Quarter: 2021Q1

REPORT INFORMATION
  Report Type: Report from Study
  Country: None (occurrence: US)
  Receive Date: 20201118
  Receipt Date: 20210217
  Transmission Date: 20210419
  Serious: Yes (Hospitalization)
  Sender: FDA-Public Use
  Company Number: US-ABBVIE-20K-163-3654037-00

PATIENT
  Age: 58 Year
  Sex: Male

DRUGS (1)
  1. HUMIRA [Suspect]
     Active Substance: ADALIMUMAB
     Indication: PSORIATIC ARTHROPATHY
     Route: 058
     Dates: start: 20201105

REACTIONS (15)
  - Peripheral swelling [Recovering/Resolving]
  - Musculoskeletal stiffness [Not Recovered/Not Resolved]
  - Hypoaesthesia [Unknown]
  - Skin fissures [Unknown]
  - Tibia fracture [Recovering/Resolving]
  - Impaired self-care [Unknown]
  - Gait disturbance [Not Recovered/Not Resolved]
  - Loss of personal independence in daily activities [Not Recovered/Not Resolved]
  - Burning sensation [Unknown]
  - Haemorrhage [Unknown]
  - Fibula fracture [Recovering/Resolving]
  - Pain in extremity [Not Recovered/Not Resolved]
  - Pain [Recovering/Resolving]
  - Paraesthesia [Unknown]
  - Drug ineffective [Recovering/Resolving]

NARRATIVE: CASE EVENT DATE: 202011
